FAERS Safety Report 10178398 (Version 1)
Quarter: 2014Q2

REPORT INFORMATION
  Report Type: Report from Study
  Country: CA (occurrence: CA)
  Receive Date: 20140519
  Receipt Date: 20140519
  Transmission Date: 20141212
  Serious: Yes (Hospitalization)
  Sender: FDA-Public Use
  Company Number: CA-JNJFOC-20140507481

PATIENT
  Age: 74 Year
  Sex: Female
  Weight: 48 kg

DRUGS (7)
  1. REMICADE [Suspect]
     Indication: CROHN^S DISEASE
     Route: 042
     Dates: start: 2010
  2. TYLENOL [Concomitant]
     Indication: PREMEDICATION
     Route: 048
  3. SOLUCORTEF [Concomitant]
     Indication: PREMEDICATION
     Route: 042
  4. TECTA [Concomitant]
     Route: 048
  5. ASPIRIN [Concomitant]
     Route: 048
  6. COVERSYL [Concomitant]
     Route: 048
  7. ROSUVASTATIN [Concomitant]
     Route: 048

REACTIONS (1)
  - Pancreatitis [Recovered/Resolved]
